FAERS Safety Report 9330345 (Version 1)
Quarter: 2013Q2

REPORT INFORMATION
  Report Type: Spontaneous
  Country: US (occurrence: US)
  Receive Date: 20130605
  Receipt Date: 20130605
  Transmission Date: 20140414
  Serious: Yes (Hospitalization)
  Sender: FDA-Public Use
  Company Number: US-BIOGENIDEC-2013BI049316

PATIENT
  Age: 58 Year
  Sex: Female

DRUGS (3)
  1. AVONEX [Suspect]
     Indication: MULTIPLE SCLEROSIS
     Route: 030
     Dates: start: 19981001, end: 200308
  2. AVONEX [Suspect]
     Indication: MULTIPLE SCLEROSIS
     Route: 030
     Dates: start: 200308, end: 2012
  3. AVONEX [Suspect]
     Indication: MULTIPLE SCLEROSIS
     Route: 030
     Dates: start: 2012

REACTIONS (8)
  - Fall [Recovered/Resolved]
  - Rotator cuff syndrome [Unknown]
  - Ligament rupture [Unknown]
  - Pulmonary embolism [Recovered/Resolved]
  - Foot fracture [Recovered/Resolved]
  - Head injury [Recovered/Resolved]
  - Stress [Unknown]
  - Muscular weakness [Recovered/Resolved]
